FAERS Safety Report 9786212 (Version 2)
Quarter: 2014Q1

REPORT INFORMATION
  Report Type: Spontaneous
  Country: IT (occurrence: IT)
  Receive Date: 20131227
  Receipt Date: 20140116
  Transmission Date: 20141002
  Serious: Yes (Hospitalization)
  Sender: FDA-Public Use
  Company Number: IT-BRISTOL-MYERS SQUIBB COMPANY-19929165

PATIENT
  Age: 80 Year
  Sex: Female

DRUGS (3)
  1. COUMADIN TABS 5 MG [Suspect]
     Indication: PULMONARY EMBOLISM
     Route: 048
     Dates: start: 20131107, end: 20131108
  2. HEPARIN [Suspect]
     Indication: PULMONARY EMBOLISM
     Dosage: 04NOV13 TO 11NOV13
     Route: 042
     Dates: start: 20131104
  3. LANSOX [Concomitant]
     Indication: GASTRIC ULCER
     Route: 048
     Dates: start: 20121110, end: 20131110

REACTIONS (1)
  - Anaemia [Recovering/Resolving]
